FAERS Safety Report 5831701-6 (Version None)
Quarter: 2008Q3

REPORT INFORMATION
  Report Type: 
  Country: None (occurrence: None)
  Receive Date: 20080729
  Receipt Date: 20080716
  Transmission Date: 20090109
  Serious: Yes (Hospitalization, Disabling)
  Sender: FDA-Public Use
  Company Number: 19512

PATIENT
  Age: 61 Year
  Sex: Male
  Weight: 89.7 kg

DRUGS (6)
  1. CISPLATIN [Suspect]
     Indication: OESOPHAGEAL CARCINOMA
     Dosage: 120 MG IV
     Route: 042
     Dates: start: 20071219, end: 20071219
  2. EPIRUBICIN [Suspect]
     Indication: OESOPHAGEAL CARCINOMA
     Dosage: 100 MG IV
     Route: 042
     Dates: start: 20071219, end: 20071219
  3. DEXAMETHASONE [Suspect]
     Indication: PROPHYLAXIS OF NAUSEA AND VOMITING
     Dosage: 4 MG BID PO
     Route: 048
     Dates: start: 20071219, end: 20080101
  4. XELODA [Suspect]
     Indication: OESOPHAGEAL CARCINOMA
     Dosage: 2450 MG ONCE PO
     Route: 048
     Dates: start: 20071219, end: 20080101
  5. GRANISETRON HCL [Concomitant]
  6. DOMPERIDONE [Concomitant]

REACTIONS (3)
  - HYPERGLYCAEMIC HYPEROSMOLAR NONKETOTIC SYNDROME [None]
  - LEG AMPUTATION [None]
  - PERIPHERAL ISCHAEMIA [None]
